FAERS Safety Report 6975829-6 (Version None)
Quarter: 2010Q3

REPORT INFORMATION
  Report Type: 
  Country: None (occurrence: None)
  Receive Date: 20100910
  Receipt Date: 20100902
  Transmission Date: 20110219
  Serious: Yes (Other)
  Sender: FDA-Public Use
  Company Number: ZA-RANBAXY-2010R5-37866

PATIENT

DRUGS (2)
  1. TOPIRAMATE [Suspect]
     Indication: CONVULSION
     Dosage: UNK, UNK
     Route: 065
  2. VALPROATE SODIUM [Concomitant]
     Indication: CONVULSION
     Dosage: UNK, UNK
     Route: 065

REACTIONS (1)
  - GASTRIC ULCER [None]
